FAERS Safety Report 25456696 (Version 1)
Quarter: 2025Q2

REPORT INFORMATION
  Report Type: Spontaneous
  Country: CZ (occurrence: CZ)
  Receive Date: 20250619
  Receipt Date: 20250619
  Transmission Date: 20250716
  Serious: Yes (Other)
  Sender: TEVA
  Company Number: None

PATIENT
  Age: 4 Year
  Sex: Male
  Weight: 25 kg

DRUGS (1)
  1. MONTELUKAST [Suspect]
     Active Substance: MONTELUKAST
     Indication: Product used for unknown indication
     Dosage: 0-0-1, MONTELUKAST TEVA
     Route: 048
     Dates: start: 20250506, end: 20250527

REACTIONS (4)
  - Sleep terror [Recovered/Resolved]
  - Mood altered [Recovered/Resolved]
  - Fear [Recovered/Resolved]
  - Somnambulism [Recovered/Resolved]

NARRATIVE: CASE EVENT DATE: 20250508
